FAERS Safety Report 8958667 (Version 1)
Quarter: 2012Q4

REPORT INFORMATION
  Report Type: Spontaneous
  Country: IT (occurrence: None)
  Receive Date: 20121128
  Receipt Date: 20121128
  Transmission Date: 20130627
  Serious: Yes (Other)
  Sender: FDA-Public Use
  Company Number: AUR-APL-2012-04974

PATIENT
  Age: 78 Year
  Sex: Female

DRUGS (1)
  1. SIMVASTATIN [Suspect]
     Indication: CHEST PAIN
     Route: 048

REACTIONS (4)
  - Blood creatine phosphokinase increased [None]
  - Chest pain [None]
  - Myalgia [None]
  - Vertigo [None]
